FAERS Safety Report 15385555 (Version 1)
Quarter: 2018Q3

REPORT INFORMATION
  Report Type: Spontaneous
  Country: US (occurrence: US)
  Receive Date: 20180907
  Receipt Date: 20180907
  Transmission Date: 20181010
  Serious: Yes (Life-Threatening, Hospitalization, Other)
  Sender: FDA-Public Use
  Company Number: None

PATIENT
  Age: 60 Year
  Sex: Male
  Weight: 79.65 kg

DRUGS (1)
  1. LEDIFOS [Suspect]
     Active Substance: LEDIPASVIR\SOFOSBUVIR
     Indication: HEPATITIS C
     Route: 048

REACTIONS (15)
  - Acute respiratory failure [None]
  - Hepatic encephalopathy [None]
  - Sepsis [None]
  - Cardiomyopathy [None]
  - Splenomegaly [None]
  - Personality change [None]
  - Pneumonia [None]
  - Toxicity to various agents [None]
  - Counterfeit product administered [None]
  - Thrombocytopenia [None]
  - Screaming [None]
  - Confusional state [None]
  - Hyponatraemia [None]
  - Acute left ventricular failure [None]
  - Adulterated product [None]

NARRATIVE: CASE EVENT DATE: 20180723
